FAERS Safety Report 23342218 (Version 1)
Quarter: 2023Q4

REPORT INFORMATION
  Report Type: Spontaneous
  Country: CA (occurrence: CA)
  Receive Date: 20231227
  Receipt Date: 20231227
  Transmission Date: 20240110
  Serious: Yes (Other)
  Sender: FDA-Public Use
  Company Number: CA-PFIZER INC-202300449917

PATIENT
  Age: 62 Year
  Sex: Male

DRUGS (1)
  1. RUXIENCE [Suspect]
     Active Substance: RITUXIMAB-PVVR
     Indication: Antisynthetase syndrome
     Dosage: 1 G, EVERY 6 MONTH
     Route: 042
     Dates: start: 20230607, end: 20230607

REACTIONS (3)
  - Hemianopia [Not Recovered/Not Resolved]
  - Transient ischaemic attack [Unknown]
  - Immunosuppression [Unknown]

NARRATIVE: CASE EVENT DATE: 20230101
